FAERS Safety Report 6061979-8 (Version None)
Quarter: 2009Q1

REPORT INFORMATION
  Report Type: 
  Country: None (occurrence: None)
  Receive Date: 20090202
  Receipt Date: 20090127
  Transmission Date: 20090719
  Serious: No
  Sender: FDA-Public Use
  Company Number: US-B.I. PHARMACEUTICALS,INC./RIDGEFIELD-2009-BP-01040BP

PATIENT
  Sex: Female

DRUGS (2)
  1. ZANTAC 75 [Suspect]
     Indication: DYSPEPSIA
     Dosage: 75MG
     Route: 048
     Dates: start: 20090120, end: 20090123
  2. OSCAL [Concomitant]
     Indication: RESORPTION BONE INCREASED
     Route: 048

REACTIONS (1)
  - DRUG INEFFECTIVE [None]
